FAERS Safety Report 12548707 (Version 1)
Quarter: 2016Q3

REPORT INFORMATION
  Report Type: Spontaneous
  Country: US (occurrence: None)
  Receive Date: 20160711
  Receipt Date: 20160711
  Transmission Date: 20161109
  Serious: Yes (Life-Threatening, Disabling, Other)
  Sender: FDA-Public Use
  Company Number: None

PATIENT
  Age: 44 Year
  Sex: Female
  Weight: 63.5 kg

DRUGS (19)
  1. BOTOX [Suspect]
     Active Substance: ONABOTULINUMTOXINA
     Indication: TORTICOLLIS
     Route: 030
     Dates: start: 20160615
  2. VITAMIN C [Concomitant]
     Active Substance: ASCORBIC ACID
  3. OMEGA 3-6-9 [Concomitant]
     Active Substance: FISH OIL
  4. MACROBID [Concomitant]
     Active Substance: NITROFURANTOIN\NITROFURANTOIN MONOHYDRATE
     Indication: MIGRAINE
     Dosage: 175 UNITS
  5. MIRALAX [Concomitant]
     Active Substance: POLYETHYLENE GLYCOL 3350
  6. HYDROCODONE [Concomitant]
     Active Substance: HYDROCODONE
  7. MULTI-VITAMIN [Concomitant]
     Active Substance: .ALPHA.-TOCOPHEROL ACETATE, DL-\ASCORBIC ACID\CYANOCOBALAMIN\FLUORIDE ION\FOLIC ACID\NIACIN\PYRIDOXINE\RIBOFLAVIN\THIAMINE\VITAMIN A\VITAMIN D
  8. ASPIRIN. [Concomitant]
     Active Substance: ASPIRIN
  9. ATIVAN [Concomitant]
     Active Substance: LORAZEPAM
  10. BOTOX [Suspect]
     Active Substance: ONABOTULINUMTOXINA
     Indication: MIGRAINE
     Route: 030
     Dates: start: 20160615
  11. ZANTAC [Concomitant]
     Active Substance: RANITIDINE HYDROCHLORIDE
  12. CALCIUM-D [Concomitant]
  13. FLOVENT [Concomitant]
     Active Substance: FLUTICASONE PROPIONATE
  14. COLACE [Concomitant]
     Active Substance: DOCUSATE SODIUM
  15. TURMERIC [Concomitant]
     Active Substance: TURMERIC
  16. MACROBID [Concomitant]
     Active Substance: NITROFURANTOIN\NITROFURANTOIN MONOHYDRATE
     Indication: TORTICOLLIS
     Dosage: 175 UNITS
  17. XOPENEX [Concomitant]
     Active Substance: LEVALBUTEROL HYDROCHLORIDE
  18. LEVOTHYROXIN [Concomitant]
     Active Substance: LEVOTHYROXINE
  19. VITAMIN B12 [Concomitant]
     Active Substance: CYANOCOBALAMIN

REACTIONS (11)
  - Asthenia [None]
  - Botulism [None]
  - Autonomic nervous system imbalance [None]
  - Urinary tract infection [None]
  - Fatigue [None]
  - Dysphagia [None]
  - Arrhythmia [None]
  - Facial paralysis [None]
  - Impaired gastric emptying [None]
  - Iatrogenic injury [None]
  - Dyspnoea [None]

NARRATIVE: CASE EVENT DATE: 20160616
